FAERS Safety Report 22637789 (Version 8)
Quarter: 2023Q4

REPORT INFORMATION
  Report Type: Spontaneous
  Country: US (occurrence: US)
  Receive Date: 20230626
  Receipt Date: 20231229
  Transmission Date: 20240110
  Serious: Yes (Hospitalization, Other)
  Sender: FDA-Public Use
  Company Number: US-BRISTOL-MYERS SQUIBB COMPANY-2023-084716

PATIENT
  Age: 75 Year
  Sex: Male

DRUGS (2)
  1. LENALIDOMIDE [Suspect]
     Active Substance: LENALIDOMIDE
     Indication: Plasma cell myeloma
     Dosage: FREQUENCY: TAKE 1 CAPSULE BY MOUTH EVERY DAY ON DAYS 1-14, THEN 7 DAYS OFF EVERY 21
     Route: 048
     Dates: start: 20230609
  2. LENALIDOMIDE [Suspect]
     Active Substance: LENALIDOMIDE
     Dosage: TAKE 1 CAPSULE BY MOUTH EVERY DAY ON DAYS 1-21 ON THEN 7 DAYS OFF EVERY 28 DAYS
     Route: 048

REACTIONS (18)
  - Constipation [Recovered/Resolved]
  - Exposure to SARS-CoV-2 [Unknown]
  - Neck pain [Unknown]
  - Musculoskeletal chest pain [Unknown]
  - Nervousness [Unknown]
  - Off label use [Unknown]
  - Fatigue [Not Recovered/Not Resolved]
  - Nausea [Unknown]
  - Decreased appetite [Unknown]
  - Spinal cord disorder [Not Recovered/Not Resolved]
  - Neoplasm malignant [Unknown]
  - Pruritus [Not Recovered/Not Resolved]
  - Dysgeusia [Not Recovered/Not Resolved]
  - Alopecia [Not Recovered/Not Resolved]
  - Tinnitus [Not Recovered/Not Resolved]
  - Asthenia [Unknown]
  - Deafness [Unknown]
  - Tremor [Unknown]

NARRATIVE: CASE EVENT DATE: 20230705
